FAERS Safety Report 10089188 (Version 1)
Quarter: 2014Q2

REPORT INFORMATION
  Report Type: Spontaneous
  Country: IT (occurrence: IT)
  Receive Date: 20140421
  Receipt Date: 20140421
  Transmission Date: 20141212
  Serious: Yes (Other)
  Sender: FDA-Public Use
  Company Number: IT-BAYER-2014-055111

PATIENT
  Age: 56 Year
  Sex: Female

DRUGS (2)
  1. SORAFENIB (RAF KINASE INHIBITOR) [Suspect]
     Indication: HEPATOCELLULAR CARCINOMA
     Dosage: DAILY DOSE 400 MG
  2. EVEROLIMUS [Concomitant]
     Indication: IMMUNOSUPPRESSION

REACTIONS (2)
  - Cholestasis [None]
  - Fatigue [None]
